FAERS Safety Report 21511578 (Version 2)
Quarter: 2022Q4

REPORT INFORMATION
  Report Type: Spontaneous
  Country: US (occurrence: US)
  Receive Date: 20221027
  Receipt Date: 20221128
  Transmission Date: 20230112
  Serious: No
  Sender: FDA-Public Use
  Company Number: US-GLAXOSMITHKLINE-US2022AMR154585

PATIENT
  Age: 40 Year
  Sex: Female

DRUGS (1)
  1. ZEJULA [Suspect]
     Active Substance: NIRAPARIB
     Indication: Ovarian cancer
     Dosage: 200 MG, QD
     Dates: start: 20221024

REACTIONS (4)
  - Diarrhoea [Recovered/Resolved]
  - Nausea [Recovering/Resolving]
  - Tension [Unknown]
  - Fatigue [Unknown]

NARRATIVE: CASE EVENT DATE: 20221025
